FAERS Safety Report 8040354-0 (Version None)
Quarter: 2012Q1

REPORT INFORMATION
  Report Type: 
  Country: None (occurrence: None)
  Receive Date: 20120111
  Receipt Date: 20111228
  Transmission Date: 20120608
  Serious: No
  Sender: FDA-Public Use
  Company Number: US-AMGEN-USASP2011069414

PATIENT
  Age: 44 Year
  Sex: Male

DRUGS (1)
  1. ENBREL [Suspect]
     Indication: RHEUMATOID ARTHRITIS
     Dosage: 25 MG, 2 TIMES/WK
     Dates: start: 20020101, end: 20111201

REACTIONS (4)
  - INJECTION SITE URTICARIA [None]
  - INJECTION SITE SWELLING [None]
  - GAIT DISTURBANCE [None]
  - MUSCLE SPASMS [None]
